FAERS Safety Report 10135944 (Version 4)
Quarter: 2014Q2

REPORT INFORMATION
  Report Type: Spontaneous
  Country: JP (occurrence: JP)
  Receive Date: 20140429
  Receipt Date: 20140606
  Transmission Date: 20141212
  Serious: Yes (Death)
  Sender: FDA-Public Use
  Company Number: JP-ROCHE-1390308

PATIENT
  Age: 73 Year
  Sex: Female

DRUGS (3)
  1. LUCENTIS [Suspect]
     Indication: RETINAL VEIN OCCLUSION
     Route: 050
     Dates: start: 20130904, end: 20130904
  2. AVASTIN [Suspect]
     Indication: RETINAL VEIN OCCLUSION
     Dosage: 2 YEARS
     Route: 031
     Dates: start: 20110621
  3. AVASTIN [Suspect]
     Dosage: 2 YEARS
     Route: 031
     Dates: end: 20130402

REACTIONS (3)
  - Aortic dissection [Fatal]
  - Respiratory arrest [Fatal]
  - Oedema [Unknown]
